FAERS Safety Report 9973977 (Version 1)
Quarter: 2014Q1

REPORT INFORMATION
  Report Type: Report from Study
  Country: US (occurrence: US)
  Receive Date: 20140306
  Receipt Date: 20140306
  Transmission Date: 20141002
  Serious: No
  Sender: FDA-Public Use
  Company Number: US-ABBVIE-13P-163-1154932-00

PATIENT
  Sex: Female

DRUGS (10)
  1. HUMIRA [Suspect]
     Indication: CROHN^S DISEASE
     Dates: start: 2009, end: 2011
  2. HUMIRA [Suspect]
     Dates: start: 2011
  3. ZINC [Concomitant]
     Indication: VITAMIN SUPPLEMENTATION
  4. OMEPRAZOLE [Concomitant]
     Indication: GASTROOESOPHAGEAL REFLUX DISEASE
  5. METHOTREXATE [Concomitant]
     Indication: CROHN^S DISEASE
  6. IRON [Concomitant]
     Indication: MINERAL SUPPLEMENTATION
  7. BUDESONIDE [Concomitant]
     Indication: CROHN^S DISEASE
  8. CALCIUM [Concomitant]
     Indication: MINERAL SUPPLEMENTATION
  9. HYOSCYAMINE [Concomitant]
     Indication: CROHN^S DISEASE
  10. FOLIC ACID [Concomitant]
     Indication: VITAMIN SUPPLEMENTATION

REACTIONS (1)
  - Haematochezia [Recovering/Resolving]
